FAERS Safety Report 25609513 (Version 2)
Quarter: 2025Q3

REPORT INFORMATION
  Report Type: Spontaneous
  Country: EU (occurrence: EU)
  Receive Date: 20250727
  Receipt Date: 20250915
  Transmission Date: 20251021
  Serious: Yes (Other)
  Sender: AMGEN
  Company Number: EU-AMGEN-FRASP2025147378

PATIENT
  Age: 9 Month
  Sex: Male

DRUGS (1)
  1. RAVICTI [Suspect]
     Active Substance: GLYCEROL PHENYLBUTYRATE
     Indication: Cholestatic pruritus
     Dosage: 16.25 GRAM, DAILY
     Route: 064
     Dates: start: 20240618, end: 20240815

REACTIONS (4)
  - Premature delivery [Recovered/Resolved]
  - Neural tube defect [Not Recovered/Not Resolved]
  - Diastematomyelia [Not Recovered/Not Resolved]
  - Maternal exposure during pregnancy [Recovered/Resolved]

NARRATIVE: CASE EVENT DATE: 20240618
